FAERS Safety Report 12963959 (Version 1)
Quarter: 2016Q4

REPORT INFORMATION
  Report Type: Spontaneous
  Country: FR (occurrence: FR)
  Receive Date: 20161122
  Receipt Date: 20161122
  Transmission Date: 20170207
  Serious: Yes (Hospitalization)
  Sender: FDA-Public Use
  Company Number: PHHY2016FR157734

PATIENT
  Age: 84 Year
  Sex: Female

DRUGS (6)
  1. ZOPHREN [Suspect]
     Active Substance: ONDANSETRON
     Indication: PROPHYLAXIS OF NAUSEA AND VOMITING
     Dosage: UNK
     Route: 048
     Dates: start: 20161003
  2. ENDOXAN [Suspect]
     Active Substance: CYCLOPHOSPHAMIDE
     Indication: RHEUMATOID ARTHRITIS
     Dosage: 600 MG/M2, UNK
     Route: 042
     Dates: start: 20161003, end: 20161003
  3. TOBREX [Concomitant]
     Active Substance: TOBRAMYCIN
     Indication: ULCERATIVE KERATITIS
     Route: 065
  4. GLUCOSE [Concomitant]
     Active Substance: DEXTROSE
     Indication: DEHYDRATION
     Dosage: 1.5 L, UNK
     Route: 065
  5. CORTANCYL [Concomitant]
     Active Substance: PREDNISONE
     Indication: RHEUMATOID ARTHRITIS
     Dosage: 40 MG, QD
     Route: 048
     Dates: start: 20161001
  6. SOLU-MEDROL [Concomitant]
     Active Substance: METHYLPREDNISOLONE SODIUM SUCCINATE
     Indication: PRODUCT USED FOR UNKNOWN INDICATION
     Dosage: 120 MG, QD (BOLUS)
     Route: 065
     Dates: start: 20160928, end: 20160930

REACTIONS (1)
  - Hyponatraemia [Recovered/Resolved]

NARRATIVE: CASE EVENT DATE: 20161005
